FAERS Safety Report 5386143-7 (Version None)
Quarter: 2007Q3

REPORT INFORMATION
  Report Type: 
  Country: None (occurrence: None)
  Receive Date: 20070711
  Receipt Date: 20070711
  Transmission Date: 20080115
  Serious: Yes (Other)
  Sender: FDA-Public Use
  Company Number: None

PATIENT
  Age: 1 Hour
  Sex: Male
  Weight: 3.7 kg

DRUGS (1)
  1. ZOLOFT [Suspect]
     Indication: DEPRESSION
     Dosage: 150MG DAILY PO
     Route: 048

REACTIONS (9)
  - DRUG EXPOSURE DURING PREGNANCY [None]
  - DRUG EXPOSURE VIA BREAST MILK [None]
  - FEELING JITTERY [None]
  - HYPERREFLEXIA [None]
  - HYPERTONIA [None]
  - HYPOGLYCAEMIA NEONATAL [None]
  - HYPOMAGNESAEMIA [None]
  - IRRITABILITY [None]
  - NEONATAL DISORDER [None]
